FAERS Safety Report 6602910-3 (Version None)
Quarter: 2010Q1

REPORT INFORMATION
  Report Type: 
  Country: None (occurrence: None)
  Receive Date: 20100219
  Receipt Date: 20100209
  Transmission Date: 20100710
  Serious: Yes (Hospitalization)
  Sender: FDA-Public Use
  Company Number: 2009SP043366

PATIENT
  Age: 46 Year
  Sex: Female
  Weight: 58.9676 kg

DRUGS (4)
  1. NUVARING [Suspect]
     Indication: CONTRACEPTION
     Dosage: VAG
     Route: 067
     Dates: start: 20070401, end: 20070901
  2. ACYCLOVIR [Concomitant]
  3. CLEOCIN [Concomitant]
  4. CLINDAMYCIN [Concomitant]

REACTIONS (16)
  - ALOPECIA [None]
  - BLOOD HOMOCYSTEINE DECREASED [None]
  - DERMATITIS ALLERGIC [None]
  - FLANK PAIN [None]
  - HEART RATE IRREGULAR [None]
  - HYPOTHYROIDISM [None]
  - INFECTIOUS MONONUCLEOSIS [None]
  - LICHENOID KERATOSIS [None]
  - MUSCLE STRAIN [None]
  - OROPHARYNGEAL PAIN [None]
  - PAIN IN EXTREMITY [None]
  - PLEURAL EFFUSION [None]
  - PULMONARY EMBOLISM [None]
  - PULMONARY INFARCTION [None]
  - SKIN WRINKLING [None]
  - STRESS [None]
